FAERS Safety Report 10098456 (Version 1)
Quarter: 2014Q2

REPORT INFORMATION
  Report Type: Spontaneous
  Country: US (occurrence: None)
  Receive Date: 20140422
  Receipt Date: 20140422
  Transmission Date: 20141212
  Serious: Yes (Hospitalization)
  Sender: FDA-Public Use
  Company Number: None

PATIENT
  Age: 70 Year
  Sex: Male
  Weight: 91 kg

DRUGS (9)
  1. ELTROMBOPAG [Suspect]
     Indication: APLASTIC ANAEMIA
     Route: 048
     Dates: start: 20140127, end: 20140421
  2. MAGNESIUM OXIDE [Concomitant]
  3. ACYCLOVIR [Concomitant]
  4. CYCLOSPORINE [Concomitant]
  5. ISOSORBIDE [Concomitant]
  6. CARVEDILOL [Concomitant]
  7. OXYCODONE [Concomitant]
  8. ACETAMINOPHEN [Concomitant]
  9. LORAZEPAM [Concomitant]

REACTIONS (6)
  - Syncope [None]
  - Hypertension [None]
  - Paraesthesia [None]
  - Transfusion reaction [None]
  - Renal failure [None]
  - Orthostatic hypotension [None]
